FAERS Safety Report 13336822 (Version 1)
Quarter: 2017Q1

REPORT INFORMATION
  Report Type: Spontaneous
  Country: US (occurrence: US)
  Receive Date: 20170314
  Receipt Date: 20170314
  Transmission Date: 20170428
  Serious: No
  Sender: FDA-Public Use
  Company Number: US-JAZZ-2017-US-002728

PATIENT
  Sex: Female

DRUGS (25)
  1. XYREM [Suspect]
     Active Substance: SODIUM OXYBATE
     Indication: INSOMNIA
     Dosage: 2.25G, BID
     Route: 048
     Dates: start: 200904, end: 200904
  2. VENLAFAXINE HCL [Concomitant]
     Active Substance: VENLAFAXINE HYDROCHLORIDE
  3. VITAMIN B6 [Concomitant]
     Active Substance: PYRIDOXINE HYDROCHLORIDE
  4. CALCIUM + VITAMIN D3 [Concomitant]
     Active Substance: CALCIUM CARBONATE\CHOLECALCIFEROL
  5. DIAZEPAM. [Concomitant]
     Active Substance: DIAZEPAM
  6. ESTRADIOL DEPORT [Concomitant]
  7. XYREM [Suspect]
     Active Substance: SODIUM OXYBATE
     Dosage: 4.5G, BID
     Route: 048
     Dates: start: 201205
  8. LIPITOR [Concomitant]
     Active Substance: ATORVASTATIN CALCIUM
  9. PREMARIN [Concomitant]
     Active Substance: ESTROGENS, CONJUGATED
  10. NALTREXONE [Concomitant]
     Active Substance: NALTREXONE
  11. FAMOTIDINE. [Concomitant]
     Active Substance: FAMOTIDINE
  12. PROVERA [Concomitant]
     Active Substance: MEDROXYPROGESTERONE ACETATE
  13. PROTONIX                           /00661201/ [Concomitant]
     Active Substance: OMEPRAZOLE
  14. GLUTATHIONE [Concomitant]
     Active Substance: GLUTATHIONE
  15. PREVACID [Concomitant]
     Active Substance: LANSOPRAZOLE
  16. KLONOPIN [Concomitant]
     Active Substance: CLONAZEPAM
  17. TRAZODONE [Concomitant]
     Active Substance: TRAZODONE HYDROCHLORIDE
  18. XYREM [Suspect]
     Active Substance: SODIUM OXYBATE
     Dosage: DOSE ADJUSTMENT
     Route: 048
     Dates: start: 2009, end: 2012
  19. FAMCICLOVIR. [Concomitant]
     Active Substance: FAMCICLOVIR
  20. NEXIUM [Concomitant]
     Active Substance: ESOMEPRAZOLE MAGNESIUM
  21. METOPROLOL SUCCINATE. [Concomitant]
     Active Substance: METOPROLOL SUCCINATE
  22. PATANOL [Concomitant]
     Active Substance: OLOPATADINE HYDROCHLORIDE
  23. GABAPENTIN. [Concomitant]
     Active Substance: GABAPENTIN
  24. VITAMIN B12 [Concomitant]
     Active Substance: CYANOCOBALAMIN
  25. PROGESTERONE. [Concomitant]
     Active Substance: PROGESTERONE

REACTIONS (1)
  - Nasopharyngitis [Not Recovered/Not Resolved]
